FAERS Safety Report 11144871 (Version 1)
Quarter: 2015Q2

REPORT INFORMATION
  Report Type: Spontaneous
  Country: US (occurrence: US)
  Receive Date: 20150528
  Receipt Date: 20150528
  Transmission Date: 20150821
  Serious: No
  Sender: FDA-Public Use
  Company Number: US-BIOGENIDEC-2015BI071284

PATIENT
  Sex: Female

DRUGS (1)
  1. AVONEX [Suspect]
     Active Substance: INTERFERON BETA-1A
     Indication: PRODUCT USED FOR UNKNOWN INDICATION
     Route: 030

REACTIONS (9)
  - Clumsiness [Unknown]
  - Multiple sclerosis relapse [Unknown]
  - Pain [Unknown]
  - Peroneal nerve palsy [Unknown]
  - Mobility decreased [Unknown]
  - Muscular weakness [Unknown]
  - Fall [Recovered/Resolved]
  - Gait disturbance [Unknown]
  - Paraesthesia [Unknown]
